FAERS Safety Report 16116387 (Version 1)
Quarter: 2019Q1

REPORT INFORMATION
  Report Type: Spontaneous
  Country: US (occurrence: US)
  Receive Date: 20190225
  Receipt Date: 20190225
  Transmission Date: 20190418
  Serious: Yes (Hospitalization)
  Sender: FDA-Public Use
  Company Number: None

PATIENT
  Age: 50 Year
  Sex: Male
  Weight: 72.57 kg

DRUGS (2)
  1. PYRIDOSTIGMINE [Suspect]
     Active Substance: PYRIDOSTIGMINE
     Indication: PRODUCT USED FOR UNKNOWN INDICATION
     Dosage: DOSE 180 ?STRENGTH 180
     Route: 048
     Dates: start: 2013
  2. PYRIDOSTIGMINE [Suspect]
     Active Substance: PYRIDOSTIGMINE
     Dosage: DOSE 160?STRENGTH 160
     Route: 048

REACTIONS (4)
  - Asthenia [None]
  - Muscular weakness [None]
  - Hypoxia [None]
  - Product substitution issue [None]

NARRATIVE: CASE EVENT DATE: 20130101
